FAERS Safety Report 10233907 (Version 1)
Quarter: 2014Q2

REPORT INFORMATION
  Report Type: Spontaneous
  Country: SE (occurrence: SE)
  Receive Date: 20140612
  Receipt Date: 20140612
  Transmission Date: 20141212
  Serious: Yes (Other)
  Sender: FDA-Public Use
  Company Number: SE-ACTAVIS-2014-12034

PATIENT
  Age: 87 Year
  Sex: Female

DRUGS (10)
  1. GABAPENTIN ACTAVIS [Suspect]
     Indication: NEURALGIA
     Dosage: UNK; 1X1 - 1X3
     Route: 048
     Dates: start: 20140221, end: 20140312
  2. SIMVASTATIN ARROW [Suspect]
     Indication: PRODUCT USED FOR UNKNOWN INDICATION
     Dosage: 20 MG, DAILY
     Route: 048
     Dates: start: 20130217, end: 20140314
  3. SAROTEN [Suspect]
     Indication: NEURALGIA
     Dosage: 25 MG, DAILY; MAH H. LUNDBECK A/S
     Route: 048
     Dates: start: 20131014, end: 20140216
  4. ALVEDON [Concomitant]
     Indication: PRODUCT USED FOR UNKNOWN INDICATION
     Dosage: UNK; ALVEDON FORTE
     Route: 065
  5. CITODON                            /01259001/ [Concomitant]
     Indication: PRODUCT USED FOR UNKNOWN INDICATION
     Dosage: UNK
     Route: 065
  6. IMDUR [Concomitant]
     Indication: PRODUCT USED FOR UNKNOWN INDICATION
     Dosage: UNK
     Route: 065
  7. SELOKENZOC [Concomitant]
     Indication: PRODUCT USED FOR UNKNOWN INDICATION
     Dosage: UNK
     Route: 065
  8. SIFROL [Concomitant]
     Indication: PRODUCT USED FOR UNKNOWN INDICATION
     Dosage: UNK
     Route: 065
  9. NITROLINGUAL [Concomitant]
     Indication: PRODUCT USED FOR UNKNOWN INDICATION
     Dosage: UNK
     Route: 065
  10. TIPAROL [Concomitant]
     Indication: PRODUCT USED FOR UNKNOWN INDICATION
     Dosage: UNK -AS NECESSARY
     Route: 065

REACTIONS (3)
  - Confusional state [Recovered/Resolved]
  - Somnambulism [Recovered/Resolved]
  - Fatigue [Recovered/Resolved]
